FAERS Safety Report 5859861-1 (Version None)
Quarter: 2008Q3

REPORT INFORMATION
  Report Type: 
  Country: None (occurrence: None)
  Receive Date: 20080827
  Receipt Date: 20080819
  Transmission Date: 20090109
  Serious: Yes (Hospitalization)
  Sender: FDA-Public Use
  Company Number: SE-NOVOPROD-276543

PATIENT
  Age: 81 Year
  Sex: Male
  Weight: 80 kg

DRUGS (4)
  1. INSULATARD FLEXPEN [Suspect]
     Indication: TYPE 2 DIABETES MELLITUS
  2. LIPITOR [Concomitant]
  3. ALFADIL [Concomitant]
  4. CETRIZIN                           /00522801/ [Concomitant]

REACTIONS (3)
  - GINGIVAL PAIN [None]
  - PRURITUS [None]
  - SWOLLEN TONGUE [None]
